FAERS Safety Report 9020657 (Version 1)
Quarter: 2013Q1

REPORT INFORMATION
  Report Type: Spontaneous
  Country: None (occurrence: US)
  Receive Date: 20130119
  Receipt Date: 20130119
  Transmission Date: 20140127
  Serious: No
  Sender: FDA-Public Use
  Company Number: US-ALLERGAN-1206558US

PATIENT
  Age: 50 Year
  Sex: Female

DRUGS (2)
  1. BOTOX? [Suspect]
     Indication: MIGRAINE
     Dosage: UNK
     Route: 030
     Dates: start: 20120430, end: 20120430
  2. TRAZODONE [Concomitant]
     Indication: SLEEP DISORDER THERAPY
     Route: 048

REACTIONS (4)
  - Neck pain [Not Recovered/Not Resolved]
  - Headache [Not Recovered/Not Resolved]
  - Facial paresis [Not Recovered/Not Resolved]
  - Eyelid ptosis [Not Recovered/Not Resolved]
